FAERS Safety Report 6994233-8 (Version None)
Quarter: 2010Q3

REPORT INFORMATION
  Report Type: 
  Country: None (occurrence: None)
  Receive Date: 20100917
  Receipt Date: 20100513
  Transmission Date: 20110219
  Serious: Yes (Other)
  Sender: FDA-Public Use
  Company Number: US-ASTRAZENECA-2008UW27617

PATIENT
  Age: 565 Month
  Sex: Male
  Weight: 134.3 kg

DRUGS (8)
  1. SEROQUEL [Suspect]
     Indication: INSOMNIA
     Dosage: 25-100 MG
     Route: 048
     Dates: start: 20001201, end: 20060701
  2. SEROQUEL [Suspect]
     Indication: DEPRESSION
     Dosage: 25-100 MG
     Route: 048
     Dates: start: 20001201, end: 20060701
  3. HALDOL [Concomitant]
  4. ZYPREXA [Concomitant]
  5. SERZONE [Concomitant]
  6. NEURONTIN [Concomitant]
  7. KLONOPIN [Concomitant]
  8. AMITRIPTYLINE HCL [Concomitant]
     Dates: start: 20050101

REACTIONS (3)
  - ERECTILE DYSFUNCTION [None]
  - THYROID DISORDER [None]
  - TYPE 2 DIABETES MELLITUS [None]
